FAERS Safety Report 15621604 (Version 1)
Quarter: 2018Q4

REPORT INFORMATION
  Report Type: Spontaneous
  Country: US (occurrence: US)
  Receive Date: 20181109
  Receipt Date: 20181109
  Transmission Date: 20190205
  Serious: No
  Sender: FDA-Public Use
  Company Number: None

PATIENT
  Age: 55 Year
  Sex: Female

DRUGS (4)
  1. FLUOXETINE [Concomitant]
     Active Substance: FLUOXETINE HYDROCHLORIDE
  2. ANASTROZOLE. [Concomitant]
     Active Substance: ANASTROZOLE
  3. LORAZEPAM. [Concomitant]
     Active Substance: LORAZEPAM
  4. IBRANCE [Suspect]
     Active Substance: PALBOCICLIB
     Dates: start: 20181106, end: 20181108

REACTIONS (2)
  - Diarrhoea [None]
  - Nausea [None]

NARRATIVE: CASE EVENT DATE: 20181108
